APPROVED DRUG PRODUCT: NIFEDIPINE
Active Ingredient: NIFEDIPINE
Strength: 90MG
Dosage Form/Route: TABLET, EXTENDED RELEASE;ORAL
Application: A212016 | Product #001 | TE Code: AB2
Applicant: ELITE PHARMACEUTICAL SOLUTION INC
Approved: Nov 18, 2020 | RLD: No | RS: No | Type: RX